FAERS Safety Report 7357596-X (Version None)
Quarter: 2011Q1

REPORT INFORMATION
  Report Type: 
  Country: None (occurrence: None)
  Receive Date: 20110317
  Receipt Date: 20110315
  Transmission Date: 20110831
  Serious: Yes (Hospitalization)
  Sender: FDA-Public Use
  Company Number: DE-BRISTOL-MYERS SQUIBB COMPANY-15509896

PATIENT
  Sex: Male

DRUGS (2)
  1. ABILIFY [Suspect]
     Indication: SCHIZOPHRENIA
     Dosage: 1DF=15-20MG.
     Dates: start: 20101101
  2. HALDOL [Concomitant]
     Indication: ACUTE PSYCHOSIS
     Dates: end: 20101101

REACTIONS (2)
  - PSYCHOTIC DISORDER [None]
  - AGGRESSION [None]
